FAERS Safety Report 5927745-6 (Version None)
Quarter: 2008Q4

REPORT INFORMATION
  Report Type: 
  Country: None (occurrence: None)
  Receive Date: 20081023
  Receipt Date: 20081013
  Transmission Date: 20090506
  Serious: Yes (Hospitalization)
  Sender: FDA-Public Use
  Company Number: US-PURDUE-USA_2002_0003181

PATIENT
  Age: 37 Year
  Sex: Female

DRUGS (18)
  1. OXYCONTIN [Suspect]
     Indication: CANCER PAIN
     Dosage: 20 MG, BID
     Route: 048
     Dates: start: 20010913, end: 20010918
  2. OXYCONTIN [Suspect]
     Indication: CANCER PAIN
     Dosage: 40 MG, BID
     Route: 048
     Dates: start: 20010918, end: 20020501
  3. OXYCODONE HCL [Suspect]
     Indication: CANCER PAIN
     Dosage: 5 MG, Q4H PRN
     Route: 048
     Dates: start: 20010801
  4. CISPLATIN [Concomitant]
     Indication: CHEMOTHERAPY
     Dosage: UNK, WEEKLY
     Route: 042
     Dates: start: 20010801, end: 20011201
  5. DILTIAZEM HCL [Concomitant]
     Indication: DRUG USE FOR UNKNOWN INDICATION
     Dosage: 120 MG, DAILY
     Route: 048
  6. PREDNISONE TAB [Concomitant]
     Indication: SARCOIDOSIS
     Route: 048
  7. COMPAZINE                          /00013302/ [Concomitant]
     Indication: NAUSEA
     Dosage: 10 MG, Q6H PRN
     Route: 048
  8. DITROPAN [Concomitant]
     Indication: BLADDER SPASM
     Dosage: UNK, TID
     Route: 048
  9. PAXIL [Concomitant]
     Indication: DRUG USE FOR UNKNOWN INDICATION
     Dosage: UNK, DAILY
     Route: 048
  10. B+O [Concomitant]
     Indication: BLADDER SPASM
     Dosage: UNK, PRN
     Route: 054
  11. MIRALAX [Concomitant]
     Indication: CONSTIPATION
     Dosage: UNK, BID
     Route: 048
  12. SENOKOT [Concomitant]
     Indication: CONSTIPATION
     Dosage: UNK, BID
     Route: 048
  13. PREVACID [Concomitant]
     Indication: DRUG USE FOR UNKNOWN INDICATION
     Dosage: UNK, PRN
     Route: 048
  14. AMBIEN [Concomitant]
     Indication: DRUG USE FOR UNKNOWN INDICATION
     Dosage: 10 MG, NOCTE
     Route: 048
  15. PERCOCET [Concomitant]
     Indication: PAIN MANAGEMENT
     Dosage: UNK, PRN
     Route: 048
  16. MORPHINE SULFATE [Concomitant]
     Indication: PAIN
     Dosage: UNK, PRN
     Route: 048
  17. BACTRIM [Concomitant]
     Indication: PROPHYLAXIS
     Dosage: UNK, DAILY
     Route: 048
  18. PYRIDIUM [Concomitant]
     Indication: DRUG USE FOR UNKNOWN INDICATION
     Dosage: UNK, UNK
     Route: 048

REACTIONS (23)
  - ABDOMINAL PAIN [None]
  - ABDOMINAL PAIN UPPER [None]
  - ASTHENIA [None]
  - BLADDER SPASM [None]
  - CHILLS [None]
  - CHOLELITHIASIS [None]
  - COLITIS ISCHAEMIC [None]
  - CONSTIPATION [None]
  - DEHYDRATION [None]
  - DEPRESSION [None]
  - DIARRHOEA [None]
  - DIZZINESS [None]
  - DRUG INEFFECTIVE [None]
  - DYSPNOEA [None]
  - DYSURIA [None]
  - HAEMATURIA [None]
  - NAUSEA [None]
  - PYREXIA [None]
  - RECTAL HAEMORRHAGE [None]
  - SEPSIS [None]
  - URINARY TRACT INFECTION [None]
  - VOMITING [None]
  - WEIGHT DECREASED [None]
